FAERS Safety Report 7994700-4 (Version None)
Quarter: 2011Q4

REPORT INFORMATION
  Report Type: 
  Country: None (occurrence: None)
  Receive Date: 20111220
  Receipt Date: 20111207
  Transmission Date: 20120403
  Serious: Yes (Hospitalization)
  Sender: FDA-Public Use
  Company Number: US-EISAI INC-E7273-00277-SOL-US

PATIENT
  Age: 79 Year
  Sex: Male
  Weight: 64 kg

DRUGS (8)
  1. TARGRETIN [Suspect]
     Route: 048
     Dates: start: 20111112
  2. DECITABINE [Suspect]
     Indication: ACUTE MYELOID LEUKAEMIA
     Route: 041
     Dates: start: 20111114, end: 20111118
  3. COREG [Concomitant]
  4. MULTI-VITAMIN [Concomitant]
     Route: 048
  5. ALLOPURINOL [Concomitant]
  6. LOVAZA [Concomitant]
     Route: 048
  7. LISINOPRIL [Concomitant]
  8. ZOCOR [Concomitant]

REACTIONS (2)
  - FEBRILE NEUTROPENIA [None]
  - LUNG INFECTION [None]
